FAERS Safety Report 14631885 (Version 1)
Quarter: 2018Q1

REPORT INFORMATION
  Report Type: Report from Study
  Country: US (occurrence: US)
  Receive Date: 20180313
  Receipt Date: 20180313
  Transmission Date: 20180509
  Serious: Yes (Hospitalization, Other)
  Sender: FDA-Public Use
  Company Number: US-BAYER-2017-229401

PATIENT
  Age: 64 Year
  Sex: Male

DRUGS (5)
  1. STIVARGA [Suspect]
     Active Substance: REGORAFENIB
     Indication: HEPATOBLASTOMA
     Dosage: 160 MG, QD
     Route: 048
     Dates: start: 20171020
  2. STIVARGA [Suspect]
     Active Substance: REGORAFENIB
     Indication: HEPATOCELLULAR CARCINOMA
     Dosage: 160 MG, QD
     Route: 048
     Dates: start: 20170818, end: 2017
  3. STIVARGA [Suspect]
     Active Substance: REGORAFENIB
     Indication: HEPATIC CANCER
     Dosage: DAILY DOSE 160 MG FOR 21 DAYS ON 7 DAYS OFF
     Route: 048
     Dates: start: 20180119, end: 20180211
  4. STIVARGA [Suspect]
     Active Substance: REGORAFENIB
     Indication: HEPATOCELLULAR CARCINOMA
     Dosage: DAILY DOSE 120 MG
     Route: 048
     Dates: start: 2018, end: 2018
  5. NEXAVAR [Suspect]
     Active Substance: SORAFENIB
     Indication: HEPATOCELLULAR CARCINOMA
     Dosage: 200 MG, QD
     Route: 048
     Dates: start: 201603, end: 201706

REACTIONS (11)
  - Diarrhoea [Not Recovered/Not Resolved]
  - Gait inability [None]
  - Skin disorder [None]
  - Hospitalisation [Recovered/Resolved]
  - Diarrhoea [Recovered/Resolved]
  - Abdominal pain [None]
  - Alopecia [Not Recovered/Not Resolved]
  - Skin exfoliation [Not Recovered/Not Resolved]
  - Hospitalisation [None]
  - Skin exfoliation [None]
  - Palmar-plantar erythrodysaesthesia syndrome [None]

NARRATIVE: CASE EVENT DATE: 201708
